FAERS Safety Report 6037702-X (Version None)
Quarter: 2009Q1

REPORT INFORMATION
  Report Type: 
  Country: None (occurrence: None)
  Receive Date: 20090113
  Receipt Date: 20090105
  Transmission Date: 20090719
  Serious: Yes (Other)
  Sender: FDA-Public Use
  Company Number: 039065

PATIENT
  Age: 52 Year
  Sex: Female
  Weight: 63.5 kg

DRUGS (12)
  1. TRAZODONE HCL [Suspect]
     Indication: ANXIETY
     Dosage: 200 MG, QD, ORAL, 100 MG, TID, ORAL, 50 MG, QD, ORAL
     Route: 048
     Dates: start: 20080601, end: 20080601
  2. TRAZODONE HCL [Suspect]
     Indication: DEPRESSION
     Dosage: 200 MG, QD, ORAL, 100 MG, TID, ORAL, 50 MG, QD, ORAL
     Route: 048
     Dates: start: 20080601, end: 20080601
  3. TRAZODONE HCL [Suspect]
     Indication: ANXIETY
     Dosage: 200 MG, QD, ORAL, 100 MG, TID, ORAL, 50 MG, QD, ORAL
     Route: 048
     Dates: start: 20080601, end: 20080601
  4. TRAZODONE HCL [Suspect]
     Indication: DEPRESSION
     Dosage: 200 MG, QD, ORAL, 100 MG, TID, ORAL, 50 MG, QD, ORAL
     Route: 048
     Dates: start: 20080601, end: 20080601
  5. TRAZODONE HCL [Suspect]
     Indication: ANXIETY
     Dosage: 200 MG, QD, ORAL, 100 MG, TID, ORAL, 50 MG, QD, ORAL
     Route: 048
     Dates: start: 20080101
  6. TRAZODONE HCL [Suspect]
     Indication: DEPRESSION
     Dosage: 200 MG, QD, ORAL, 100 MG, TID, ORAL, 50 MG, QD, ORAL
     Route: 048
     Dates: start: 20080101
  7. TRAZODONE HCL [Suspect]
     Indication: ANXIETY
     Dosage: 200 MG, QD, ORAL, 100 MG, TID, ORAL, 50 MG, QD, ORAL
     Route: 048
     Dates: start: 20080201
  8. TRAZODONE HCL [Suspect]
     Indication: DEPRESSION
     Dosage: 200 MG, QD, ORAL, 100 MG, TID, ORAL, 50 MG, QD, ORAL
     Route: 048
     Dates: start: 20080201
  9. TRAZODONE HCL [Suspect]
     Indication: ANXIETY
     Dosage: 200 MG, QD, ORAL, 100 MG, TID, ORAL, 50 MG, QD, ORAL
     Route: 048
     Dates: start: 20080601
  10. TRAZODONE HCL [Suspect]
     Indication: DEPRESSION
     Dosage: 200 MG, QD, ORAL, 100 MG, TID, ORAL, 50 MG, QD, ORAL
     Route: 048
     Dates: start: 20080601
  11. LEXAPRO [Concomitant]
  12. WELLBUTRIN [Concomitant]

REACTIONS (4)
  - INCORRECT DOSE ADMINISTERED [None]
  - SIMPLE PARTIAL SEIZURES [None]
  - TREATMENT NONCOMPLIANCE [None]
  - TREMOR [None]
